FAERS Safety Report 7991724-8 (Version None)
Quarter: 2011Q4

REPORT INFORMATION
  Report Type: 
  Country: None (occurrence: None)
  Receive Date: 20111219
  Receipt Date: 20111216
  Transmission Date: 20120403
  Serious: Yes (Other)
  Sender: FDA-Public Use
  Company Number: US-ROCHE-1022864

PATIENT
  Sex: Male

DRUGS (1)
  1. ACCUTANE [Suspect]
     Indication: PRODUCT USED FOR UNKNOWN INDICATION
     Dosage: INGESTED FOR A CERTAIN PERIOD OF TIME BEGINNING IN THE EARLY 1990 S

REACTIONS (2)
  - INFLAMMATORY BOWEL DISEASE [None]
  - FIBROMYALGIA [None]
